FAERS Safety Report 11158161 (Version 1)
Quarter: 2015Q2

REPORT INFORMATION
  Report Type: Other
  Country: GB (occurrence: GB)
  Receive Date: 20150603
  Receipt Date: 20150603
  Transmission Date: 20150821
  Serious: Yes (Hospitalization)
  Sender: FDA-Public Use
  Company Number: GB-MYLANLABS-2015M1016854

PATIENT

DRUGS (1)
  1. RISPERIDONE. [Suspect]
     Active Substance: RISPERIDONE
     Dosage: UNK (DOSAGE FORM: UNSPECIFIED)
     Route: 065

REACTIONS (4)
  - Muscle atrophy [Unknown]
  - Psychiatric symptom [Unknown]
  - Gait disturbance [Unknown]
  - Urinary tract infection [Unknown]
